FAERS Safety Report 4469674-3 (Version None)
Quarter: 2004Q3

REPORT INFORMATION
  Report Type: 
  Country: None (occurrence: None)
  Receive Date: 20040917
  Receipt Date: 20040829
  Transmission Date: 20050211
  Serious: Yes (Life-Threatening, Hospitalization)
  Sender: FDA-Public Use
  Company Number: 2003-BP-06342BP

PATIENT
  Sex: Male

DRUGS (3)
  1. VIRAMUNE [Suspect]
     Indication: HIV INFECTION
     Dosage: 400 MG (200 MG, 2 IN 1 D), PO
     Route: 048
  2. COMBIVIR [Concomitant]
  3. TESTOSTERONE [Concomitant]

REACTIONS (1)
  - STEVENS-JOHNSON SYNDROME [None]
